FAERS Safety Report 7473080-7 (Version None)
Quarter: 2011Q2

REPORT INFORMATION
  Report Type: 
  Country: None (occurrence: None)
  Receive Date: 20110511
  Receipt Date: 20110428
  Transmission Date: 20111010
  Serious: Yes (Other)
  Sender: FDA-Public Use
  Company Number: GR-ELI_LILLY_AND_COMPANY-GR201105000247

PATIENT
  Age: 13 Year
  Sex: Female
  Weight: 63 kg

DRUGS (3)
  1. ZYPREXA [Suspect]
     Indication: PSYCHOTIC DISORDER
     Dosage: 2.5 MG, QD
     Route: 048
     Dates: start: 20110420, end: 20110424
  2. DEPAKENE [Concomitant]
     Indication: EPILEPSY
     Dosage: UNK
     Dates: start: 20060101
  3. ZYPREXA [Suspect]
     Dosage: 2.5 MG, QD
     Route: 048
     Dates: start: 20110426, end: 20110426

REACTIONS (5)
  - OFF LABEL USE [None]
  - HYPERHIDROSIS [None]
  - PALLOR [None]
  - INCREASED APPETITE [None]
  - NUCHAL RIGIDITY [None]
